FAERS Safety Report 16139052 (Version 1)
Quarter: 2019Q2

REPORT INFORMATION
  Report Type: Spontaneous
  Country: ES (occurrence: ES)
  Receive Date: 20190401
  Receipt Date: 20190401
  Transmission Date: 20190711
  Serious: Yes (Hospitalization)
  Sender: FDA-Public Use
  Company Number: ES-ACCORD-117285

PATIENT
  Age: 74 Year
  Sex: Female

DRUGS (5)
  1. FUROSEMIDE. [Suspect]
     Active Substance: FUROSEMIDE
     Indication: CARDIAC FAILURE
     Route: 048
     Dates: start: 2016, end: 201707
  2. IBUPROFEN. [Interacting]
     Active Substance: IBUPROFEN
     Indication: CATARRH
     Route: 048
     Dates: start: 20170620, end: 20170705
  3. METFORMIN [Concomitant]
     Active Substance: METFORMIN HYDROCHLORIDE
     Indication: TYPE 2 DIABETES MELLITUS
     Dosage: 850MG
     Route: 048
  4. SPIRONOLACTONE ALTER [Interacting]
     Active Substance: SPIRONOLACTONE
     Indication: CARDIAC FAILURE
     Dosage: STRENGTH 25 MG
     Route: 048
     Dates: start: 2016, end: 201707
  5. CO-DIOVAN [Interacting]
     Active Substance: HYDROCHLOROTHIAZIDE\VALSARTAN
     Indication: HYPERTENSION
     Dosage: THE PATIENT DOES NOT KNOW THE DOSE
     Route: 048
     Dates: start: 2016, end: 201707

REACTIONS (4)
  - Acute kidney injury [Recovered/Resolved]
  - Drug interaction [Unknown]
  - Condition aggravated [Recovered/Resolved]
  - Hyperkalaemia [Recovered/Resolved]

NARRATIVE: CASE EVENT DATE: 20170705
